FAERS Safety Report 4905523-4 (Version None)
Quarter: 2006Q1

REPORT INFORMATION
  Report Type: 
  Country: None (occurrence: None)
  Receive Date: 20060208
  Receipt Date: 20060124
  Transmission Date: 20060701
  Serious: Yes (Life-Threatening, Hospitalization, Disabling)
  Sender: FDA-Public Use
  Company Number: US-AMGEN-US167785

PATIENT
  Age: 34 Year
  Sex: Female
  Weight: 64.8 kg

DRUGS (19)
  1. ENBREL [Suspect]
     Indication: LUNG DISORDER
     Route: 058
     Dates: start: 20051220, end: 20060113
  2. MEDROL [Concomitant]
     Route: 048
  3. CELLCEPT [Concomitant]
     Route: 048
  4. VORICONAZOLE [Concomitant]
     Route: 048
  5. PENTAMIDINE [Concomitant]
     Route: 048
  6. ACYCLOVIR [Concomitant]
     Route: 048
  7. NEUTRA-PHOS [Concomitant]
  8. MAGNESIUM OXIDE [Concomitant]
     Route: 048
  9. SODIUM CHLORIDE [Concomitant]
     Route: 048
  10. POTASSIUM CITRATE [Concomitant]
     Route: 048
  11. LANTUS [Concomitant]
  12. THYROXINE [Concomitant]
     Route: 048
  13. SINGULAIR [Concomitant]
     Route: 048
  14. ALLEGRA [Concomitant]
     Route: 048
  15. FOSAMAX [Concomitant]
     Route: 048
  16. PAXIL [Concomitant]
     Route: 048
  17. NEXIUM [Concomitant]
     Route: 048
  18. POTASSIUM CHLORIDE [Concomitant]
     Route: 048
  19. LIPITOR [Concomitant]
     Route: 048

REACTIONS (2)
  - ACUTE MYELOID LEUKAEMIA RECURRENT [None]
  - BLOOD LACTATE DEHYDROGENASE INCREASED [None]
